FAERS Safety Report 8077268-6 (Version None)
Quarter: 2012Q1

REPORT INFORMATION
  Report Type: 
  Country: None (occurrence: None)
  Receive Date: 20120126
  Receipt Date: 20120126
  Transmission Date: 20120608
  Serious: No
  Sender: FDA-Public Use
  Company Number: None

PATIENT
  Sex: Female
  Weight: 57 kg

DRUGS (9)
  1. CARBOPLATIN [Suspect]
     Dosage: 225 MG
     Dates: end: 20110118
  2. MARINOL [Concomitant]
  3. ONDANSETRON HCL [Concomitant]
  4. ATIVAN [Concomitant]
  5. DEXAMETHASONE [Concomitant]
  6. LORTAB [Concomitant]
  7. TAXOL [Suspect]
     Dosage: 160 MG
     Dates: end: 20110118
  8. IMODIUM [Concomitant]
  9. PHENERGAN [Concomitant]

REACTIONS (5)
  - WEIGHT DECREASED [None]
  - CACHEXIA [None]
  - ORTHOSTATIC INTOLERANCE [None]
  - VOMITING [None]
  - NAUSEA [None]
